FAERS Safety Report 4965027-X (Version None)
Quarter: 2006Q1

REPORT INFORMATION
  Report Type: 
  Country: None (occurrence: None)
  Receive Date: 20060130
  Receipt Date: 20051109
  Transmission Date: 20060701
  Serious: Yes (Hospitalization)
  Sender: FDA-Public Use
  Company Number: COT_0254_2005

PATIENT
  Age: 47 Year
  Sex: Female
  Weight: 54.4 kg

DRUGS (15)
  1. VENTAVIS [Suspect]
     Indication: PULMONARY HYPERTENSION
     Dosage: 5 MCG 6XD IH
     Dates: start: 20050726
  2. TRACLEER [Concomitant]
  3. M.V.I. [Concomitant]
  4. POTASSIUM [Concomitant]
  5. PENTASA [Concomitant]
  6. XANAX [Concomitant]
  7. ROBINUL FORTE [Concomitant]
  8. LASIX [Concomitant]
  9. PREDNISONE [Concomitant]
  10. CARDIZEM [Concomitant]
  11. LEXAPRO [Concomitant]
  12. KLONOPIN [Concomitant]
  13. COUMADIN [Concomitant]
  14. ADVAIR DISKUS 100/50 [Concomitant]
  15. TESSALON [Concomitant]

REACTIONS (3)
  - CHEST PAIN [None]
  - DYSPNOEA EXERTIONAL [None]
  - FATIGUE [None]
